FAERS Safety Report 4357747-5 (Version None)
Quarter: 2004Q2

REPORT INFORMATION
  Report Type: 
  Country: None (occurrence: None)
  Receive Date: 20040511
  Receipt Date: 20040427
  Transmission Date: 20050107
  Serious: Yes (Other)
  Sender: FDA-Public Use
  Company Number: GBWYE595420FEB04

PATIENT
  Sex: Female

DRUGS (7)
  1. EFFEXOR XR [Suspect]
     Dosage: 75MG, FREQUENCY UNKNOWN, ORAL; A FEW DAYS
     Route: 048
  2. EFFEXOR [Suspect]
     Indication: CHRONIC FATIGUE SYNDROME
     Dosage: SEE IMAGE
     Route: 048
  3. EFFEXOR [Suspect]
     Indication: DEPRESSION
     Dosage: SEE IMAGE
     Route: 048
  4. EFFEXOR [Suspect]
     Indication: PANIC ATTACK
     Dosage: SEE IMAGE
     Route: 048
  5. EFFEXOR [Suspect]
     Indication: CHRONIC FATIGUE SYNDROME
     Dosage: SEE IMAGE
     Route: 048
  6. EFFEXOR [Suspect]
     Indication: DEPRESSION
     Dosage: SEE IMAGE
     Route: 048
  7. EFFEXOR [Suspect]
     Indication: PANIC ATTACK
     Dosage: SEE IMAGE
     Route: 048

REACTIONS (4)
  - BIPOLAR I DISORDER [None]
  - CONDITION AGGRAVATED [None]
  - MANIA [None]
  - PANIC ATTACK [None]
